FAERS Safety Report 14393740 (Version 1)
Quarter: 2018Q1

REPORT INFORMATION
  Report Type: Spontaneous
  Country: US (occurrence: US)
  Receive Date: 20180112
  Receipt Date: 20180112
  Transmission Date: 20180509
  Serious: Yes (Other)
  Sender: FDA-Public Use
  Company Number: None

PATIENT
  Age: 47 Year
  Sex: Female
  Weight: 119.75 kg

DRUGS (19)
  1. PRILOSEC [Concomitant]
     Active Substance: OMEPRAZOLE MAGNESIUM
  2. CLIDINIUM-CHLORDIAZEPOXIDE (LIBRAX) [Concomitant]
  3. CROMOLYN (CROLOM) [Concomitant]
  4. SOLIFENACIN (VESICARE) [Concomitant]
  5. ALBUTEROL HFA (PROVENTIL; VENTOLIN; PROAIR) [Concomitant]
  6. AZELASTINE (ASTEPRO) [Concomitant]
  7. GLATIRAMER ACETATE. [Suspect]
     Active Substance: GLATIRAMER ACETATE
     Indication: MULTIPLE SCLEROSIS
     Route: 058
     Dates: start: 20180106, end: 20180106
  8. NUVIGIL [Concomitant]
     Active Substance: ARMODAFINIL
  9. COPAXONE [Concomitant]
     Active Substance: GLATIRAMER ACETATE
  10. DOXYCYCLINE MONOHYDRATE [Concomitant]
     Active Substance: DOXYCYCLINE
  11. ATIVAN [Concomitant]
     Active Substance: LORAZEPAM
  12. MINOCYCLINE HCL [Concomitant]
     Active Substance: MINOCYCLINE HYDROCHLORIDE
  13. NEURONTIN [Concomitant]
     Active Substance: GABAPENTIN
  14. KETOCONAZOLE (NIZORAL) [Concomitant]
  15. ZANAFLEX [Concomitant]
     Active Substance: TIZANIDINE HYDROCHLORIDE
  16. VITAMIN D, CHOLECALCIFEROL [Concomitant]
  17. BUPROPION XL (WELLBUTRIN-XL) [Concomitant]
  18. DELTASONE [Concomitant]
     Active Substance: PREDNISONE
  19. TRETINOIN (RETIN-A) [Concomitant]

REACTIONS (3)
  - Product substitution issue [None]
  - Wheezing [None]
  - Injection site reaction [None]

NARRATIVE: CASE EVENT DATE: 20180106
